FAERS Safety Report 6870161-3 (Version None)
Quarter: 2010Q3

REPORT INFORMATION
  Report Type: 
  Country: None (occurrence: None)
  Receive Date: 20100712
  Receipt Date: 20100625
  Transmission Date: 20110219
  Serious: Yes (Hospitalization)
  Sender: FDA-Public Use
  Company Number: 20100625CINRY1534

PATIENT
  Age: 16 Year
  Sex: Male

DRUGS (2)
  1. CINRYZE [Suspect]
     Indication: HEREDITARY ANGIOEDEMA
     Dosage: 1000 UNIT, EVERY 3 TO 4 DAYS, INTRAVENOUS
     Route: 042
  2. CINRYZE [Suspect]
     Indication: PROPHYLAXIS
     Dosage: 1000 UNIT, EVERY 3 TO 4 DAYS, INTRAVENOUS
     Route: 042

REACTIONS (4)
  - CATHETER SITE ERYTHEMA [None]
  - CATHETER SITE SWELLING [None]
  - PYREXIA [None]
  - THROMBOSIS IN DEVICE [None]
